FAERS Safety Report 19148127 (Version 2)
Quarter: 2021Q2

REPORT INFORMATION
  Report Type: Report from Study
  Country: US (occurrence: US)
  Receive Date: 20210416
  Receipt Date: 20210517
  Transmission Date: 20210717
  Serious: Yes (Hospitalization)
  Sender: FDA-Public Use
  Company Number: US-AMGEN-USACT2021057132

PATIENT
  Age: 64 Year
  Sex: Male
  Weight: 92.7 kg

DRUGS (25)
  1. B?COMPLEX [VITAMIN B COMPLEX] [Concomitant]
     Dosage: 1 UNK, QD
     Route: 048
  2. CALCIUM;MAGNESIUM;ZINC [Concomitant]
     Dosage: 3 TABS, QD
     Route: 048
  3. CARFILZOMIB [Suspect]
     Active Substance: CARFILZOMIB
     Indication: PLASMA CELL MYELOMA
     Dosage: 70 MILLIGRAM/SQ. METER, PER CHEMO REGIM
     Route: 042
  4. COENZYME Q10 [Concomitant]
     Active Substance: DIETARY SUPPLEMENT\UBIDECARENONE
     Dosage: UNK 1 CAP, QD
  5. FISH OIL [Concomitant]
     Active Substance: FISH OIL
     Dosage: UNK 2 CAPS, QD
     Route: 048
  6. MILK THISTLE [SILYBUM MARIANUM] [Concomitant]
     Active Substance: DIETARY SUPPLEMENT\HERBALS\MILK THISTLE
     Dosage: UNK 1 CAP, QD
     Route: 048
  7. IRISH MOSS [Concomitant]
     Dosage: UNK 2 TABS, BID
     Route: 048
  8. VITAMIN C [Concomitant]
     Active Substance: ASCORBIC ACID
     Dosage: 500 MILLIGRAM, QD
     Route: 048
  9. KYOLIC [Concomitant]
     Dosage: 2 TABS, QD
     Route: 048
  10. TRIPHALA [Concomitant]
     Dosage: UNK 1/2 TSP PRN
     Route: 048
  11. OMEPRAZOLE. [Concomitant]
     Active Substance: OMEPRAZOLE
     Dosage: 1 TAB, QD
     Route: 048
  12. DEXAMETHASONE. [Suspect]
     Active Substance: DEXAMETHASONE
     Indication: PLASMA CELL MYELOMA
     Dosage: 20 MILLIGRAM, PER CHEMO REGIM
     Route: 048
  13. ACYCLOVIR [ACICLOVIR] [Concomitant]
     Active Substance: ACYCLOVIR
     Dosage: 400 MILLIGRAM, BID
  14. ELOTUZUMAB. [Suspect]
     Active Substance: ELOTUZUMAB
     Indication: PLASMA CELL MYELOMA
     Dosage: 10 MILLIGRAM/KILOGRAM, PER CHEMO REGIM
     Route: 042
     Dates: start: 20200818
  15. SAW PALMETTO [SERENOA REPENS] [Concomitant]
     Active Substance: HERBALS\SAW PALMETTO
     Dosage: 1 CAP, QD
     Route: 048
  16. TURKEY TAIL [Concomitant]
     Dosage: 2 CAPS, QD
     Route: 048
  17. ASPIRIN [ACETYLSALICYLIC ACID] [Concomitant]
     Active Substance: ASPIRIN
     Dosage: 325 MILLIGRAM, QD
  18. LENALIDOMIDE [Suspect]
     Active Substance: LENALIDOMIDE
     Indication: PLASMA CELL MYELOMA
     Dosage: 25 MILLIGRAM, PER CHEMO REGIM
     Route: 065
  19. TYLENOL [Concomitant]
     Active Substance: ACETAMINOPHEN
     Dosage: 500 MILLIGRAM PRN
  20. LOSARTAN. [Concomitant]
     Active Substance: LOSARTAN
     Dosage: 25 MILLIGRAM, QD
     Route: 048
  21. GARLIC W/PARSLEY [Concomitant]
     Dosage: UNK UNK, QD
     Route: 048
  22. ALOE VERA [Concomitant]
     Active Substance: ALOE VERA LEAF
     Dosage: UNK 2 TBLSP, QD
     Route: 048
  23. VITAMIN B12 [Concomitant]
     Active Substance: CYANOCOBALAMIN
     Dosage: 1 UNK, QD
     Route: 048
  24. L?LYSINE [LYSINE] [Concomitant]
     Dosage: 1000 MILLIGRAM, QD
     Route: 048
  25. MULLEIN [Concomitant]
     Dosage: 1 GTT DROPS PRN
     Route: 048

REACTIONS (3)
  - Hypertension [Recovered/Resolved]
  - Chest pain [Recovered/Resolved]
  - Sinus bradycardia [Recovered/Resolved]

NARRATIVE: CASE EVENT DATE: 20210413
